FAERS Safety Report 6063984-4 (Version None)
Quarter: 2009Q1

REPORT INFORMATION
  Report Type: 
  Country: None (occurrence: None)
  Receive Date: 20090204
  Receipt Date: 20090128
  Transmission Date: 20090719
  Serious: Yes (Life-Threatening)
  Sender: FDA-Public Use
  Company Number: JP-ASTRAZENECA-2009AP00484

PATIENT
  Age: 5193 Day
  Sex: Male

DRUGS (20)
  1. MEROPEN [Suspect]
     Indication: SEPSIS
     Route: 041
     Dates: start: 20081012, end: 20081014
  2. MEROPEN [Suspect]
     Route: 041
     Dates: start: 20081031, end: 20081108
  3. AMBISOME [Suspect]
     Indication: FUNGAL INFECTION
     Route: 041
     Dates: start: 20081015, end: 20081128
  4. GLEEVEC [Suspect]
     Indication: FUNGAL INFECTION
     Route: 048
     Dates: start: 20081030, end: 20081128
  5. VFEND [Concomitant]
     Route: 041
     Dates: start: 20081022, end: 20081029
  6. CYLOCIDE [Concomitant]
     Route: 041
     Dates: start: 20081125, end: 20081128
  7. FLUMARIN [Concomitant]
     Indication: SEPSIS
     Route: 041
     Dates: start: 20081009, end: 20081012
  8. AZACTAM [Concomitant]
     Indication: SEPSIS
     Dates: start: 20081009, end: 20081012
  9. MINOPEN [Concomitant]
     Indication: SEPSIS
     Route: 041
     Dates: start: 20081012, end: 20081022
  10. VICCILLIN [Concomitant]
     Indication: SEPSIS
     Dates: start: 20081012, end: 20081014
  11. FUNGUARD [Concomitant]
     Indication: FUNGAL INFECTION
     Route: 041
     Dates: start: 20081013, end: 20081014
  12. FUNGUARD [Concomitant]
     Route: 041
     Dates: start: 20081030
  13. GRAN [Concomitant]
     Dates: start: 20081012, end: 20081022
  14. TIENAM [Concomitant]
     Indication: SEPSIS
     Route: 041
     Dates: start: 20081014, end: 20081022
  15. HABEKACIN [Concomitant]
     Indication: SEPSIS
     Route: 041
     Dates: start: 20081014, end: 20081021
  16. GLYCEREB [Concomitant]
     Indication: FUNGAL INFECTION
     Route: 042
     Dates: start: 20081018
  17. ENDOXAN [Concomitant]
     Indication: ACUTE LYMPHOCYTIC LEUKAEMIA
     Route: 042
     Dates: start: 20081004, end: 20081004
  18. IMMUNE GLOBULIN INTRAVENOUS (HUMAN) [Concomitant]
     Indication: SEPSIS
     Route: 042
     Dates: start: 20081020, end: 20081021
  19. SOLU-MEDROL [Concomitant]
     Indication: FUNGAL INFECTION
     Route: 042
     Dates: start: 20081125, end: 20081128
  20. DAUNOMYCIN [Concomitant]
     Indication: ACUTE LYMPHOCYTIC LEUKAEMIA
     Route: 041
     Dates: start: 20081005, end: 20081006

REACTIONS (1)
  - PANCREATITIS ACUTE [None]
